FAERS Safety Report 19060828 (Version 2)
Quarter: 2021Q2

REPORT INFORMATION
  Report Type: Report from Study
  Country: CN (occurrence: CN)
  Receive Date: 20210325
  Receipt Date: 20210412
  Transmission Date: 20210717
  Serious: Yes (Other)
  Sender: FDA-Public Use
  Company Number: CN-VIIV HEALTHCARE LIMITED-CN2021GSK069233

PATIENT
  Age: 44 Year
  Sex: Male

DRUGS (8)
  1. ENTECAVIR. [Suspect]
     Active Substance: ENTECAVIR
     Dosage: UNK
     Dates: start: 201007, end: 201304
  2. LAMIVUDINE. [Suspect]
     Active Substance: LAMIVUDINE
     Dosage: UNK
     Dates: start: 200801, end: 200901
  3. ENTECAVIR. [Suspect]
     Active Substance: ENTECAVIR
     Indication: CHRONIC HEPATITIS C
     Dosage: UNK
     Dates: start: 200901, end: 200912
  4. ENTECAVIR. [Suspect]
     Active Substance: ENTECAVIR
     Dosage: UNK
     Dates: start: 200912, end: 201007
  5. ADEFOVIR DIPIVOXIL. [Suspect]
     Active Substance: ADEFOVIR DIPIVOXIL
     Indication: CHRONIC HEPATITIS C
     Dosage: UNK
     Dates: start: 200801, end: 200901
  6. ADEFOVIR DIPIVOXIL. [Suspect]
     Active Substance: ADEFOVIR DIPIVOXIL
     Dosage: UNK
     Dates: start: 201007, end: 201304
  7. ADEFOVIR DIPIVOXIL. [Suspect]
     Active Substance: ADEFOVIR DIPIVOXIL
     Dosage: UNK
     Dates: start: 200901, end: 200912
  8. LAMIVUDINE. [Suspect]
     Active Substance: LAMIVUDINE
     Indication: CHRONIC HEPATITIS C
     Dosage: UNK
     Dates: start: 200307, end: 200801

REACTIONS (4)
  - Pathogen resistance [Unknown]
  - Therapeutic product effect incomplete [Unknown]
  - Viral mutation identified [Unknown]
  - Multiple-drug resistance [Unknown]
